APPROVED DRUG PRODUCT: SODIUM ACETATE
Active Ingredient: SODIUM ACETATE
Strength: 100MEQ/50ML (2MEQ/ML)
Dosage Form/Route: SOLUTION;INTRAVENOUS
Application: A218469 | Product #001 | TE Code: AP
Applicant: AMNEAL EU LTD
Approved: Aug 8, 2025 | RLD: No | RS: No | Type: RX